FAERS Safety Report 22228595 (Version 1)
Quarter: 2023Q2

REPORT INFORMATION
  Report Type: Spontaneous
  Country: US (occurrence: None)
  Receive Date: 20230418
  Receipt Date: 20230418
  Transmission Date: 20230722
  Serious: Yes (Other)
  Sender: FDA-Public Use
  Company Number: None

PATIENT
  Age: 73 Year
  Sex: Male
  Weight: 106.5 kg

DRUGS (15)
  1. VENETOCLAX [Suspect]
     Active Substance: VENETOCLAX
     Indication: Mantle cell lymphoma
     Dosage: FREQUENCY : DAILY;?
     Route: 048
     Dates: start: 20230413, end: 20230415
  2. Ritiximab 900mg [Concomitant]
     Dates: start: 20230413, end: 20230413
  3. ALLOPURINOL [Concomitant]
     Active Substance: ALLOPURINOL
     Dates: start: 20230410
  4. ASPIRIN [Concomitant]
     Active Substance: ASPIRIN
  5. ATORVASTATIN [Concomitant]
     Active Substance: ATORVASTATIN
  6. bystolic 20mg [Concomitant]
  7. ELIQUIS [Concomitant]
     Active Substance: APIXABAN
  8. ergocalciferol 1250mcg [Concomitant]
  9. GLIPIZIDE [Concomitant]
     Active Substance: GLIPIZIDE
  10. lisinipril 40mg [Concomitant]
  11. MAGNESIUM OXIDE 400MG [Concomitant]
     Active Substance: MAGNESIUM OXIDE
  12. nifdipine CC 90mg [Concomitant]
  13. nitroglycerin 0.4mg [Concomitant]
  14. protonix 40mg EC [Concomitant]
  15. XANAX [Concomitant]
     Active Substance: ALPRAZOLAM

REACTIONS (4)
  - Blood lactate dehydrogenase increased [None]
  - Blood uric acid increased [None]
  - Blood creatinine increased [None]
  - Blood phosphorus increased [None]

NARRATIVE: CASE EVENT DATE: 20230414
